FAERS Safety Report 6230136-4 (Version None)
Quarter: 2009Q2

REPORT INFORMATION
  Report Type: 
  Country: None (occurrence: None)
  Receive Date: 20090615
  Receipt Date: 20090602
  Transmission Date: 20091009
  Serious: Yes (Hospitalization)
  Sender: FDA-Public Use
  Company Number: US-AVENTIS-200910784EU

PATIENT
  Age: 59 Year
  Sex: Female
  Weight: 81 kg

DRUGS (26)
  1. ENOXAPARIN SODIUM [Suspect]
     Indication: THROMBOSIS PROPHYLAXIS
     Route: 058
     Dates: start: 20090129, end: 20090201
  2. ENOXAPARIN SODIUM [Suspect]
     Indication: PROPHYLAXIS
     Route: 058
     Dates: start: 20090202
  3. FEMHRT [Concomitant]
     Indication: PROPHYLAXIS
     Dates: start: 20060201, end: 20090202
  4. CYMBALTA [Concomitant]
     Dates: start: 20081212
  5. CEFAZOLIN [Concomitant]
     Indication: PROPHYLAXIS
     Dosage: DOSE QUANTITY: 29012009
     Dates: start: 20090129, end: 20090130
  6. DOCUSATE [Concomitant]
     Indication: PROPHYLAXIS
     Dates: start: 20090129, end: 20090206
  7. VANCOMYCIN [Concomitant]
     Dates: start: 20090202, end: 20090202
  8. FUROSEMIDE [Concomitant]
     Dates: start: 20090203, end: 20090203
  9. ASPIRIN [Concomitant]
     Dates: start: 20090203, end: 20090206
  10. ENALAPRIL [Concomitant]
     Dates: start: 20090203, end: 20090206
  11. METOPROLOL SUCCINATE [Concomitant]
     Dates: start: 20090203, end: 20090206
  12. SYNTHROID [Concomitant]
     Dates: start: 19920301
  13. INDERAL                            /00030001/ [Concomitant]
     Dates: start: 19920301
  14. SODIUM CHLORIDE [Concomitant]
     Dates: start: 20090130, end: 20090206
  15. OXYCODONE [Concomitant]
     Dates: start: 20090130
  16. MORPHINE [Concomitant]
     Dates: start: 20090130, end: 20090130
  17. ACETAMINOPHEN AND HYDROCODONE BITARTRATE [Concomitant]
     Dates: start: 20090130, end: 20090130
  18. POTASSIUM CHLORIDE [Concomitant]
     Dates: start: 20090131, end: 20090131
  19. ACETAMINOPHEN [Concomitant]
     Dates: start: 20090131, end: 20090201
  20. ZOLPIDEM TARTRATE [Concomitant]
     Indication: PROPHYLAXIS
     Dates: start: 20090201, end: 20090201
  21. BETHANECHOL [Concomitant]
     Dates: start: 20090201, end: 20090201
  22. PROPRANOLOL [Concomitant]
     Dates: start: 20090201, end: 20090206
  23. LEVOFLOXACIN [Concomitant]
     Dates: start: 20090201, end: 20090203
  24. SACCHAROMYCES BOULARDII [Concomitant]
     Indication: PROPHYLAXIS
     Dates: start: 20090201, end: 20090206
  25. PANTOPRAZOLE SODIUM [Concomitant]
     Dates: start: 20090202, end: 20090206
  26. PIPERACILLIN SODIUM AND TAZOBACTAM SODIUM [Concomitant]
     Dates: start: 20090202, end: 20090205

REACTIONS (3)
  - ALANINE AMINOTRANSFERASE INCREASED [None]
  - ASPARTATE AMINOTRANSFERASE INCREASED [None]
  - HYPOTENSION [None]
